FAERS Safety Report 18545972 (Version 1)
Quarter: 2020Q4

REPORT INFORMATION
  Report Type: Spontaneous
  Country: FR (occurrence: FR)
  Receive Date: 20201125
  Receipt Date: 20201125
  Transmission Date: 20210114
  Serious: Yes (Hospitalization)
  Sender: FDA-Public Use
  Company Number: NVSC2020FR308271

PATIENT
  Age: 4 Year
  Sex: Female
  Weight: 13.4 kg

DRUGS (3)
  1. TEGRETOL [Suspect]
     Active Substance: CARBAMAZEPINE
     Indication: SEIZURE PROPHYLAXIS
     Dosage: 6 MG/KG, QD
     Route: 048
     Dates: start: 20201015, end: 20201027
  2. CEFPODOXIME PROXETIL. [Suspect]
     Active Substance: CEFPODOXIME PROXETIL
     Indication: OTITIS MEDIA ACUTE
     Dosage: UNK (POSOLOGIE NON COMMUNIQUEE)
     Route: 048
     Dates: start: 20201026, end: 20201027
  3. AMOXICILLINE [Suspect]
     Active Substance: AMOXICILLIN
     Indication: OTITIS MEDIA ACUTE
     Dosage: UNK (POSOLOGIE NON COMMUNIQUEE)
     Route: 048
     Dates: start: 20201023, end: 20201026

REACTIONS (1)
  - Skin reaction [Recovered/Resolved]

NARRATIVE: CASE EVENT DATE: 20201025
